FAERS Safety Report 4308831-3 (Version None)
Quarter: 2004Q1

REPORT INFORMATION
  Report Type: 
  Country: None (occurrence: None)
  Receive Date: 20040227
  Receipt Date: 20040212
  Transmission Date: 20041129
  Serious: Yes (Hospitalization)
  Sender: FDA-Public Use
  Company Number: 2002IM000891

PATIENT
  Age: 56 Year
  Sex: Female
  Weight: 58 kg

DRUGS (3)
  1. INTERFERON GAMMA-1B (INTERFERON GAMMA-1B) [Suspect]
     Indication: OVARIAN CANCER
     Dosage: 100 UG; TIW; SUBCUTANEOUS
     Route: 058
     Dates: start: 20020925
  2. CARBOPLATIN [Suspect]
     Indication: OVARIAN CANCER
     Dosage: 750 MG; Q3W; INTRAVENOUS
     Route: 042
     Dates: start: 20020925, end: 20021107
  3. PACLITAXEL [Suspect]
     Indication: OVARIAN CANCER
     Dosage: 280 MG; Q3W; INTRAVENOUS
     Route: 042
     Dates: start: 20020925, end: 20021107

REACTIONS (6)
  - BLOOD PRESSURE DECREASED [None]
  - COUGH [None]
  - HAEMOPTYSIS [None]
  - NEUTROPENIC SEPSIS [None]
  - URINARY TRACT INFECTION [None]
  - WHITE BLOOD CELL COUNT DECREASED [None]
